FAERS Safety Report 5836504-4 (Version None)
Quarter: 2008Q3

REPORT INFORMATION
  Report Type: 
  Country: None (occurrence: None)
  Receive Date: 20080806
  Receipt Date: 20080806
  Transmission Date: 20090109
  Serious: Yes (Hospitalization)
  Sender: FDA-Public Use
  Company Number: None

PATIENT
  Age: 74 Year
  Sex: Male
  Weight: 121.6 kg

DRUGS (1)
  1. SALSALATE [Suspect]
     Indication: PAIN
     Dosage: 1500 MG BID PO
     Route: 048
     Dates: start: 20080603, end: 20080713

REACTIONS (1)
  - GASTRIC HAEMORRHAGE [None]
